FAERS Safety Report 20848179 (Version 1)
Quarter: 2022Q2

REPORT INFORMATION
  Report Type: Spontaneous
  Country: US (occurrence: US)
  Receive Date: 20220519
  Receipt Date: 20220519
  Transmission Date: 20220721
  Serious: No
  Sender: FDA-Public Use
  Company Number: US-BIOGEN-2022BI01117475

PATIENT
  Age: 28 Year
  Sex: Female
  Weight: 100.79 kg

DRUGS (2)
  1. TECFIDERA [Suspect]
     Active Substance: DIMETHYL FUMARATE
     Indication: Multiple sclerosis
     Route: 048
     Dates: start: 20190726
  2. LORATADINE [Concomitant]
     Active Substance: LORATADINE
     Route: 065

REACTIONS (2)
  - Product dose omission in error [Unknown]
  - Ingrown hair [Unknown]

NARRATIVE: CASE EVENT DATE: 20220418
